FAERS Safety Report 9484320 (Version 3)
Quarter: 2013Q3

REPORT INFORMATION
  Report Type: Report from Study
  Country: AU (occurrence: AU)
  Receive Date: 20130828
  Receipt Date: 20130911
  Transmission Date: 20140515
  Serious: Yes (Disabling, Other)
  Sender: FDA-Public Use
  Company Number: AU-ASTRAZENECA-2013SE52227

PATIENT
  Age: 68 Year
  Sex: Male

DRUGS (3)
  1. ZOLADEX [Suspect]
     Indication: HORMONE THERAPY
     Route: 058
     Dates: start: 20050301, end: 201106
  2. ZOLADEX [Suspect]
     Indication: HORMONE THERAPY
     Route: 058
     Dates: start: 201303
  3. ASSASANTIN [Concomitant]
     Indication: THROMBOSIS PROPHYLAXIS
     Dates: start: 200507

REACTIONS (11)
  - Cerebrovascular accident [Unknown]
  - Coagulopathy [Unknown]
  - Blindness unilateral [Not Recovered/Not Resolved]
  - Cerebral haemorrhage [Unknown]
  - Glaucoma [Unknown]
  - Visual acuity reduced [Not Recovered/Not Resolved]
  - Optic nerve infarction [Unknown]
  - Malignant neoplasm progression [Unknown]
  - Visual field defect [Unknown]
  - Gait disturbance [Unknown]
  - Intentional drug misuse [Unknown]
